FAERS Safety Report 7030221-3 (Version None)
Quarter: 2010Q4

REPORT INFORMATION
  Report Type: 
  Country: None (occurrence: None)
  Receive Date: 20101006
  Receipt Date: 20100922
  Transmission Date: 20110411
  Serious: Yes (Hospitalization)
  Sender: FDA-Public Use
  Company Number: FR-RANBAXY-2010RR-35964

PATIENT
  Sex: Male

DRUGS (6)
  1. DILTIAZEM RPG LP 300MG GELULE A LIBERATION PROLONGEE [Suspect]
     Dosage: 300 MG, QD
     Dates: end: 20090401
  2. METFORMIN [Suspect]
     Dosage: UNK
     Route: 048
     Dates: end: 20090401
  3. PYOSTACINE [Suspect]
     Dosage: UNK
     Route: 048
     Dates: start: 20090410, end: 20090421
  4. SERESTA 50MG, COMPRIME SECABLE [Suspect]
     Dosage: 50 MG, UNK
     Route: 048
  5. NORSET [Suspect]
     Dosage: 30 MG, QD
     Route: 048
  6. NEXIUM [Suspect]
     Dosage: 20 MG, QD
     Route: 048

REACTIONS (2)
  - ERYTHEMA [None]
  - SKIN EXFOLIATION [None]
